FAERS Safety Report 8922914 (Version 1)
Quarter: 2012Q4

REPORT INFORMATION
  Report Type: 
  Country: CH (occurrence: CH)
  Receive Date: 20121125
  Receipt Date: 20121125
  Transmission Date: 20130627
  Serious: Yes (Other)
  Sender: FDA-Public Use
  Company Number: CH-009507513-1211CHE009379

PATIENT
  Age: 23 Year
  Sex: Female

DRUGS (3)
  1. REMERON [Suspect]
     Indication: INTENTIONAL SELF-INJURY
     Dosage: 30 DF, Once, total daily dose: 900 mg
     Route: 048
     Dates: start: 20120817, end: 20120817
  2. VENLAFAXINE HYDROCHLORIDE [Suspect]
     Indication: INTENTIONAL SELF-INJURY
     Dosage: 18 DF, Once, totaly daily dose: 675 mg
     Route: 048
     Dates: start: 20120817, end: 20120817
  3. QUETIAPINE FUMARATE [Suspect]
     Indication: INTENTIONAL SELF-INJURY
     Dosage: 2 DF, Once, todal daily dose: 400 mg
     Route: 048
     Dates: start: 20120817, end: 20120817

REACTIONS (4)
  - Suicide attempt [Recovered/Resolved]
  - Intentional overdose [Recovered/Resolved]
  - Somnolence [Recovered/Resolved]
  - Agitation [Recovered/Resolved]
